FAERS Safety Report 6162583-3 (Version None)
Quarter: 2009Q2

REPORT INFORMATION
  Report Type: 
  Country: None (occurrence: None)
  Receive Date: 20090421
  Receipt Date: 20070829
  Transmission Date: 20091009
  Serious: Yes (Other)
  Sender: FDA-Public Use
  Company Number: US-ASTRAZENECA-2005UW15179

PATIENT
  Age: 56 Year
  Sex: Female
  Weight: 81.6 kg

DRUGS (3)
  1. ARIMIDEX [Suspect]
     Indication: BREAST CANCER
     Route: 048
  2. FOSAMAX [Concomitant]
  3. ZOLOFT [Concomitant]

REACTIONS (3)
  - BONE DISORDER [None]
  - HEPATIC ENZYME INCREASED [None]
  - WRIST FRACTURE [None]
